FAERS Safety Report 5509206-1 (Version None)
Quarter: 2007Q4

REPORT INFORMATION
  Report Type: 
  Country: None (occurrence: None)
  Receive Date: 20071031
  Receipt Date: 20070620
  Transmission Date: 20080405
  Serious: No
  Sender: FDA-Public Use
  Company Number: 2007PV033049

PATIENT
  Age: 52 Year
  Sex: Female

DRUGS (2)
  1. SYMLIN [Suspect]
     Indication: TYPE 2 DIABETES MELLITUS
     Dosage: 60 MCG;TID;SC
     Route: 058
     Dates: start: 20060101, end: 20070101
  2. LANTUS [Concomitant]

REACTIONS (3)
  - NAUSEA [None]
  - VOMITING [None]
  - WEIGHT INCREASED [None]
